FAERS Safety Report 20841339 (Version 3)
Quarter: 2022Q2

REPORT INFORMATION
  Report Type: Spontaneous
  Country: IT (occurrence: IT)
  Receive Date: 20220517
  Receipt Date: 20220602
  Transmission Date: 20220721
  Serious: Yes (Death, Other)
  Sender: FDA-Public Use
  Company Number: None

PATIENT
  Age: 77 Year
  Sex: Male

DRUGS (5)
  1. SOLIRIS [Suspect]
     Active Substance: ECULIZUMAB
     Indication: Paroxysmal nocturnal haemoglobinuria
     Dosage: 900 MG, 1 CYCLICAL
     Route: 041
     Dates: start: 20120430, end: 20220310
  2. ENOXAPARIN SODIUM [Concomitant]
     Active Substance: ENOXAPARIN SODIUM
     Indication: Thrombosis prophylaxis
     Dosage: 4000 DF,QD
     Route: 058
     Dates: start: 20220223, end: 20220301
  3. PREDNISONE [Concomitant]
     Active Substance: PREDNISONE
     Indication: Haemolysis
     Dosage: 25 MG, QD
     Route: 065
     Dates: start: 20220316, end: 20220320
  4. REMDESIVIR [Concomitant]
     Active Substance: REMDESIVIR
     Indication: SARS-CoV-2 viraemia
     Dosage: 200 MG, PRN
     Route: 042
     Dates: start: 20220322, end: 20220324
  5. SINTROM [Concomitant]
     Active Substance: ACENOCOUMAROL
     Indication: Venous thrombosis
     Dosage: 4 MG, QD
     Route: 048
     Dates: start: 20200124, end: 20220216

REACTIONS (9)
  - Cerebral haemorrhage [Fatal]
  - Craniocerebral injury [Fatal]
  - Road traffic accident [Fatal]
  - Empyema [Fatal]
  - Pelvic fracture [Fatal]
  - Brain empyema [Fatal]
  - Systemic viral infection [Fatal]
  - Haemorrhage [Fatal]
  - Systemic bacterial infection [Fatal]

NARRATIVE: CASE EVENT DATE: 20220322
